FAERS Safety Report 9514839 (Version 2)
Quarter: 2013Q3

REPORT INFORMATION
  Report Type: Spontaneous
  Country: US (occurrence: US)
  Receive Date: 20130911
  Receipt Date: 20130916
  Transmission Date: 20140515
  Serious: No
  Sender: FDA-Public Use
  Company Number: US-009507513-1309USA003158

PATIENT
  Sex: 0

DRUGS (1)
  1. CELESTONE SOLUSPAN [Suspect]

REACTIONS (2)
  - Incorrect product storage [Unknown]
  - No adverse event [Unknown]
